FAERS Safety Report 8990586 (Version 1)
Quarter: 2012Q4

REPORT INFORMATION
  Report Type: Report from Study
  Country: US (occurrence: US)
  Receive Date: 20121228
  Receipt Date: 20121228
  Transmission Date: 20130627
  Serious: Yes (Hospitalization)
  Sender: FDA-Public Use
  Company Number: US-BRISTOL-MYERS SQUIBB COMPANY-14522510

PATIENT
  Age: 92 Year
  Sex: Male

DRUGS (11)
  1. DASATINIB [Suspect]
     Indication: PROSTATE CANCER
     Dosage: Interrupted on 20-Feb-2009.
     Route: 048
     Dates: start: 20090213
  2. DOCETAXEL [Suspect]
     Indication: PROSTATE CANCER
     Route: 042
     Dates: start: 20090212, end: 20090212
  3. PREDNISONE [Suspect]
     Dosage: Initially taken on 09Feb2009
     Route: 048
     Dates: start: 20090209
  4. DEXAMETHASONE [Suspect]
     Dosage: Every 12hr,3hr,1hr prior to infusion
Also taken on 12Feb2009
     Route: 048
     Dates: start: 20090211, end: 20090212
  5. ANZEMET [Concomitant]
     Route: 042
     Dates: start: 20090212
  6. ATACAND [Concomitant]
     Dates: start: 2003
  7. COUMADIN [Concomitant]
     Dates: start: 20020526
  8. TOPROL XL [Concomitant]
     Dates: start: 200205
  9. CALCIUM [Concomitant]
     Dates: start: 20050816
  10. ZOMETA [Concomitant]
     Dates: start: 20050816
  11. VIADUR [Concomitant]

REACTIONS (2)
  - Renal failure acute [Not Recovered/Not Resolved]
  - Dehydration [Recovered/Resolved]
